FAERS Safety Report 7409159-5 (Version None)
Quarter: 2011Q2

REPORT INFORMATION
  Report Type: 
  Country: None (occurrence: None)
  Receive Date: 20110408
  Receipt Date: 20110408
  Transmission Date: 20111010
  Serious: No
  Sender: FDA-Public Use
  Company Number: None

PATIENT
  Age: 41 Year
  Sex: Female

DRUGS (2)
  1. VINCRISTINE [Suspect]
     Dates: start: 20090911, end: 20090918
  2. KALETRA [Suspect]
     Dates: start: 20090318, end: 20090921

REACTIONS (8)
  - CONVULSION [None]
  - RESPIRATORY ARREST [None]
  - ALANINE AMINOTRANSFERASE INCREASED [None]
  - MULTI-ORGAN FAILURE [None]
  - PYREXIA [None]
  - BLOOD ALKALINE PHOSPHATASE INCREASED [None]
  - ASPARTATE AMINOTRANSFERASE INCREASED [None]
  - BLOOD BILIRUBIN INCREASED [None]
